FAERS Safety Report 8219491-3 (Version None)
Quarter: 2012Q1

REPORT INFORMATION
  Report Type: 
  Country: None (occurrence: None)
  Receive Date: 20120319
  Receipt Date: 20120312
  Transmission Date: 20120608
  Serious: Yes (Disabling)
  Sender: FDA-Public Use
  Company Number: AU-B.I. PHARMACEUTICALS,INC./RIDGEFIELD-2012-AU-00141AU

PATIENT
  Sex: Female
  Weight: 61 kg

DRUGS (7)
  1. LIPITOR [Concomitant]
  2. PRADAXA [Suspect]
     Dosage: 220 MG
     Dates: start: 20120201
  3. SOTALOL HYDROCHLORIDE [Concomitant]
  4. NEXIUM [Concomitant]
  5. PRADAXA [Suspect]
     Indication: CEREBROVASCULAR ACCIDENT PROPHYLAXIS
     Dosage: 220 MG
     Dates: start: 20110620, end: 20111201
  6. ATACAND HCT [Concomitant]
     Dosage: 16/12.5 MG
  7. NEO-MERCAZOLE TAB [Concomitant]

REACTIONS (3)
  - JOINT SWELLING [None]
  - ARTHRALGIA [None]
  - OEDEMA PERIPHERAL [None]
